FAERS Safety Report 10388217 (Version 1)
Quarter: 2014Q3

REPORT INFORMATION
  Report Type: Spontaneous
  Country: US (occurrence: US)
  Receive Date: 20140815
  Receipt Date: 20140815
  Transmission Date: 20150326
  Serious: Yes (Hospitalization)
  Sender: FDA-Public Use
  Company Number: US-GLAXOSMITHKLINE-B1023100A

PATIENT
  Age: 70 Year
  Sex: Female

DRUGS (2)
  1. ROPINIROLE. [Suspect]
     Active Substance: ROPINIROLE
     Indication: RESTLESS LEGS SYNDROME
     Dosage: 2MG AT NIGHT
     Route: 065
     Dates: start: 200910
  2. CIPROFLOXACIN. [Suspect]
     Active Substance: CIPROFLOXACIN
     Indication: URINARY TRACT INFECTION
     Route: 065

REACTIONS (6)
  - Mental status changes [Recovering/Resolving]
  - Psychotic disorder [Unknown]
  - Hallucination [Recovered/Resolved]
  - Drug interaction [Unknown]
  - Abnormal behaviour [Unknown]
  - Urinary tract infection [Unknown]
